FAERS Safety Report 8415304-5 (Version None)
Quarter: 2012Q2

REPORT INFORMATION
  Report Type: 
  Country: None (occurrence: None)
  Receive Date: 20120323
  Receipt Date: 20111206
  Transmission Date: 20120825
  Serious: Yes (Other)
  Sender: FDA-Public Use
  Company Number: 163-21880-11120944

PATIENT
  Age: 67 Year
  Sex: Female

DRUGS (9)
  1. LISINOPRIL [Concomitant]
  2. TRAZODONE HCL [Concomitant]
  3. REGULAR INSULIN (INSULIN) (UNKNOWN) [Concomitant]
  4. REVLIMID [Suspect]
     Indication: MULTIPLE MYELOMA
     Dosage: 10 MG, DAILY X 21D/28D, PO 25 MG, DAILY X 21D/28D, PO
     Route: 048
     Dates: start: 20111101
  5. REVLIMID [Suspect]
     Indication: MULTIPLE MYELOMA
     Dosage: 10 MG, DAILY X 21D/28D, PO 25 MG, DAILY X 21D/28D, PO
     Route: 048
     Dates: start: 20111001, end: 20110101
  6. SERTRALINE HYDROCHLORIDE [Concomitant]
  7. PROCHLORPERAZINE (PROCHLORPERAZINE) (UNKNOWN) [Concomitant]
  8. LORAZEPAM [Concomitant]
  9. HYDROCODONE/APAP (VICODIN) (UNKNOWN) [Concomitant]

REACTIONS (1)
  - DEEP VEIN THROMBOSIS [None]
